FAERS Safety Report 6422708-9 (Version None)
Quarter: 2009Q4

REPORT INFORMATION
  Report Type: 
  Country: None (occurrence: None)
  Receive Date: 20091102
  Receipt Date: 20091001
  Transmission Date: 20100525
  Serious: No
  Sender: FDA-Public Use
  Company Number: US-JNJFOC-20091000694

PATIENT
  Sex: Female

DRUGS (4)
  1. INVEGA [Suspect]
     Route: 048
     Dates: start: 20090201
  2. INVEGA [Suspect]
     Indication: PARANOIA
     Route: 048
     Dates: start: 20090201
  3. ZOVIA 1/35E-21 [Suspect]
     Indication: CONTRACEPTION
     Route: 048
     Dates: start: 20090907
  4. DEPAKOTE [Suspect]
     Indication: BIPOLAR DISORDER
     Dates: start: 19940101, end: 20090801

REACTIONS (1)
  - AMENORRHOEA [None]
